FAERS Safety Report 12414784 (Version 1)
Quarter: 2016Q2

REPORT INFORMATION
  Report Type: Spontaneous
  Country: NG (occurrence: NG)
  Receive Date: 20160529
  Receipt Date: 20160529
  Transmission Date: 20160815
  Serious: Yes (Death, Hospitalization)
  Sender: FDA-Public Use
  Company Number: PHHY2016NG072858

PATIENT
  Sex: Male
  Weight: 55.5 kg

DRUGS (12)
  1. CYCLOPHOSPHAMIDE. [Suspect]
     Active Substance: CYCLOPHOSPHAMIDE
     Indication: NEPHROTIC SYNDROME
     Dosage: 780 MG, UNK
     Route: 042
     Dates: start: 20160122, end: 20160122
  2. OFLOXACIN. [Concomitant]
     Active Substance: OFLOXACIN
     Indication: SEPSIS
     Dosage: 200 MG, BID
     Route: 048
  3. CLINDAMYCIN [Concomitant]
     Active Substance: CLINDAMYCIN\CLINDAMYCIN PHOSPHATE
     Indication: BACTERIAL SEPSIS
     Dosage: 80 MG, Q6H
     Route: 042
     Dates: start: 20151228, end: 20151231
  4. ATENOLOL. [Concomitant]
     Active Substance: ATENOLOL
     Indication: PALPITATIONS
     Dosage: 25 MG, UNK
     Route: 048
  5. NEORAL [Suspect]
     Active Substance: CYCLOSPORINE
     Indication: NEPHROTIC SYNDROME
     Dosage: 50 MG, BID
     Dates: start: 20151214, end: 20151221
  6. NEORAL [Suspect]
     Active Substance: CYCLOSPORINE
     Dosage: 50 MG, BID
     Route: 048
     Dates: start: 20160107, end: 20160111
  7. CALCIMAX [Concomitant]
     Active Substance: CALCIUM CARBONATE\CHOLECALCIFEROL
     Indication: HYPOCALCAEMIA
     Dosage: 600 MG, BID
     Route: 048
  8. AMLODIPINE [Concomitant]
     Active Substance: AMLODIPINE BESYLATE
     Indication: HYPERTENSION
     Dosage: 10 MG, QD
     Route: 048
  9. CLINDAMYCIN [Concomitant]
     Active Substance: CLINDAMYCIN\CLINDAMYCIN PHOSPHATE
     Dosage: 150 MG, BID
     Route: 048
     Dates: start: 20160101
  10. ATENOLOL. [Concomitant]
     Active Substance: ATENOLOL
     Indication: HYPERTENSION
  11. MYFORTIC [Suspect]
     Active Substance: MYCOPHENOLATE SODIUM
     Indication: NEPHROTIC SYNDROME
     Dosage: 360 MG, BID
     Route: 048
     Dates: start: 20160213, end: 20160220
  12. AMIKACIN [Concomitant]
     Active Substance: AMIKACIN
     Indication: BACTERIAL SEPSIS
     Dosage: 500 MG, QD
     Route: 042
     Dates: start: 20151228, end: 20151229

REACTIONS (2)
  - Nephrotic syndrome [Fatal]
  - Generalised oedema [Not Recovered/Not Resolved]
